FAERS Safety Report 10029603 (Version 1)
Quarter: 2014Q1

REPORT INFORMATION
  Report Type: Spontaneous
  Country: US (occurrence: None)
  Receive Date: 20140320
  Receipt Date: 20140320
  Transmission Date: 20141002
  Serious: Yes (Other)
  Sender: FDA-Public Use
  Company Number: None

PATIENT
  Age: 67 Year
  Sex: Female
  Weight: 78.02 kg

DRUGS (2)
  1. SUPREP BOWEL PREP KIT BRAINTREE LABORATORIES, INC [Suspect]
     Indication: COLONOSCOPY
     Dosage: 6OZ W/ 10OZ H2O + 32OZ H2O  5PM   02-10-14
     Dates: start: 20140210
  2. SUPREP BOWEL PREP KIT BRAINTREE LABORATORIES, INC [Suspect]
     Indication: ENDOSCOPY
     Dosage: 6OZ W/ 10OZ H2O + 32OZ H2O  5PM   02-10-14
     Dates: start: 20140210

REACTIONS (8)
  - Nausea [None]
  - Abdominal distension [None]
  - Muscle spasms [None]
  - Chills [None]
  - Lacrimation increased [None]
  - Rhinorrhoea [None]
  - Diarrhoea [None]
  - Feeling abnormal [None]
